FAERS Safety Report 6263852-9 (Version None)
Quarter: 2009Q3

REPORT INFORMATION
  Report Type: 
  Country: None (occurrence: None)
  Receive Date: 20090710
  Receipt Date: 20090708
  Transmission Date: 20100115
  Serious: Yes (Life-Threatening)
  Sender: FDA-Public Use
  Company Number: AU-B.I. PHARMACEUTICALS,INC./RIDGEFIELD-2009-AU-00320AU

PATIENT
  Age: 60 Year
  Sex: Female

DRUGS (8)
  1. CATAPRES [Suspect]
     Dates: start: 20080415
  2. MORPHINE [Suspect]
     Dates: start: 20080415
  3. ATRACURIUM [Suspect]
     Dates: start: 20080415
  4. CLEARAMOX CAPSULE 250MG [Suspect]
     Dates: start: 20080415
  5. LIDOCAINE [Suspect]
     Dates: start: 20080415
  6. METOCLOPRAMIDE [Suspect]
     Dates: start: 20080415
  7. LIDOCAINE [Suspect]
     Dates: start: 20080415
  8. LIDOCAINE [Suspect]
     Dosage: ONE DOSE UNSPECIFIED
     Dates: start: 20080415

REACTIONS (3)
  - ANAPHYLACTIC REACTION [None]
  - BLOOD PRESSURE DECREASED [None]
  - URTICARIA [None]
